FAERS Safety Report 7960087-6 (Version None)
Quarter: 2011Q4

REPORT INFORMATION
  Report Type: 
  Country: None (occurrence: None)
  Receive Date: 20111206
  Receipt Date: 20111129
  Transmission Date: 20120403
  Serious: Yes (Other)
  Sender: FDA-Public Use
  Company Number: PHHY2011VE105784

PATIENT
  Sex: Female

DRUGS (4)
  1. ARAVA [Concomitant]
     Indication: ARTHRITIS
     Dosage: ONE TABLET DAILY
  2. FOLIC ACID [Concomitant]
     Indication: ARTHRITIS
     Dosage: DAILY
  3. ZOLEDRONOC ACID [Suspect]
     Indication: OSTEOPOROSIS
     Dosage: 5 MG, EACH 6 MONTHS
     Route: 042
  4. CALCORT [Concomitant]
     Indication: ARTHRITIS
     Dosage: ONE TABLET DAILY

REACTIONS (3)
  - INAPPROPRIATE SCHEDULE OF DRUG ADMINISTRATION [None]
  - OVERDOSE [None]
  - STAPHYLOCOCCAL INFECTION [None]
